FAERS Safety Report 11397345 (Version 1)
Quarter: 2015Q3

REPORT INFORMATION
  Report Type: Spontaneous
  Country: US (occurrence: US)
  Receive Date: 20150819
  Receipt Date: 20150819
  Transmission Date: 20151125
  Serious: No
  Sender: FDA-Public Use
  Company Number: US-MALLINCKRODT-T201403760

PATIENT
  Age: 29 Year
  Sex: Female

DRUGS (1)
  1. CONRAY [Suspect]
     Active Substance: IOTHALAMATE MEGLUMINE
     Indication: PRODUCT USED FOR UNKNOWN INDICATION
     Dosage: 0.5 - 1CC
     Route: 058
     Dates: start: 20141014, end: 20141014

REACTIONS (3)
  - Wrong drug administered [Unknown]
  - No adverse event [Unknown]
  - Incorrect route of drug administration [Unknown]

NARRATIVE: CASE EVENT DATE: 20141014
